FAERS Safety Report 16741477 (Version 2)
Quarter: 2019Q4

REPORT INFORMATION
  Report Type: Spontaneous
  Country: US (occurrence: US)
  Receive Date: 20190826
  Receipt Date: 20191227
  Transmission Date: 20200122
  Serious: Yes (Other)
  Sender: FDA-Public Use
  Company Number: US-PFIZER INC-2019222192

PATIENT
  Sex: Female

DRUGS (23)
  1. CALCIUM CARBONATE W/FAMOTIDINE/MAGNESIUM HYDR [Concomitant]
     Dosage: UNK
  2. PRILOSEC [Suspect]
     Active Substance: OMEPRAZOLE MAGNESIUM
     Indication: RESPIRATORY DISORDER
     Dosage: 30 MILLIGRAM, QD
     Route: 048
     Dates: start: 2006, end: 2009
  3. UNISOM SLEEPTABS [Concomitant]
     Active Substance: DOXYLAMINE SUCCINATE
     Indication: SLEEP DISORDER
     Dosage: UNK
  4. BENADRYL [Concomitant]
     Active Substance: DIPHENHYDRAMINE HYDROCHLORIDE
     Indication: PRURITUS
     Dosage: UNK
  5. PEPCID COMPLETE [Concomitant]
     Active Substance: CALCIUM CARBONATE\FAMOTIDINE\MAGNESIUM HYDROXIDE
     Dosage: UNK
  6. FENTANYL. [Concomitant]
     Active Substance: FENTANYL
     Indication: PAIN
     Dosage: UNK
  7. PREMARIN [Concomitant]
     Active Substance: ESTROGENS, CONJUGATED
     Dosage: UNK
  8. LYRICA [Concomitant]
     Active Substance: PREGABALIN
     Indication: PAIN IN EXTREMITY
     Dosage: UNK
  9. TAGAMET HB [Concomitant]
     Active Substance: CIMETIDINE
     Dosage: UNK
  10. PRILOSEC [Suspect]
     Active Substance: OMEPRAZOLE MAGNESIUM
     Indication: GASTROOESOPHAGEAL REFLUX DISEASE
  11. NORCO [Concomitant]
     Active Substance: ACETAMINOPHEN\HYDROCODONE BITARTRATE
     Indication: PAIN
     Dosage: UNK
  12. MS CONTIN [Concomitant]
     Active Substance: MORPHINE SULFATE
     Indication: PAIN
     Dosage: UNK
     Dates: start: 2006, end: 2008
  13. PROTONIX [Suspect]
     Active Substance: PANTOPRAZOLE SODIUM
     Indication: RESPIRATORY DISORDER
     Dosage: 30 MG, UNK
     Route: 048
     Dates: start: 2006, end: 2009
  14. XANAX [Concomitant]
     Active Substance: ALPRAZOLAM
     Indication: ANXIETY
     Dosage: UNK
  15. TOPAZ [Concomitant]
     Indication: HEADACHE
     Dosage: UNK
  16. PEPCID [Concomitant]
     Active Substance: FAMOTIDINE
     Dosage: UNK
  17. TAGAMET HB OTC [Concomitant]
     Dosage: UNK
  18. ZANTAC [Concomitant]
     Active Substance: RANITIDINE HYDROCHLORIDE
     Dosage: UNK
  19. PREVACID [Suspect]
     Active Substance: LANSOPRAZOLE
     Indication: GASTROOESOPHAGEAL REFLUX DISEASE
     Dosage: 30 MILLIGRAMS, UNK
     Route: 048
     Dates: start: 2006, end: 2008
  20. SYNTHROID [Concomitant]
     Active Substance: LEVOTHYROXINE SODIUM
     Dosage: UNK
  21. IBUPROFEN. [Concomitant]
     Active Substance: IBUPROFEN
     Indication: PAIN
     Dosage: UNK
     Dates: start: 2016
  22. PROTONIX [Suspect]
     Active Substance: PANTOPRAZOLE SODIUM
     Indication: GASTROOESOPHAGEAL REFLUX DISEASE
  23. ADIPEX-P [Concomitant]
     Active Substance: PHENTERMINE HYDROCHLORIDE
     Indication: WEIGHT DECREASED
     Dosage: UNK

REACTIONS (6)
  - Sinus disorder [Not Recovered/Not Resolved]
  - Pain [Not Recovered/Not Resolved]
  - Chronic kidney disease [Unknown]
  - Renal failure [Not Recovered/Not Resolved]
  - Headache [Not Recovered/Not Resolved]
  - Pain in extremity [Not Recovered/Not Resolved]

NARRATIVE: CASE EVENT DATE: 2008
